FAERS Safety Report 25909569 (Version 2)
Quarter: 2025Q4

REPORT INFORMATION
  Report Type: Spontaneous
  Country: US (occurrence: US)
  Receive Date: 20251011
  Receipt Date: 20251014
  Transmission Date: 20260118
  Serious: No
  Sender: SANOFI AVENTIS
  Company Number: US-SA-2025SA302963

PATIENT
  Age: 33 Year
  Sex: Male

DRUGS (1)
  1. DUPIXENT [Suspect]
     Active Substance: DUPILUMAB
     Indication: Eosinophilic oesophagitis
     Dosage: 300 MG, QW
     Route: 058
     Dates: start: 202507

REACTIONS (5)
  - Dry skin [Unknown]
  - Erythema [Unknown]
  - Rash macular [Unknown]
  - Skin exfoliation [Unknown]
  - Ear pruritus [Unknown]

NARRATIVE: CASE EVENT DATE: 20250101
